FAERS Safety Report 6318115-X (Version None)
Quarter: 2009Q3

REPORT INFORMATION
  Report Type: 
  Country: None (occurrence: None)
  Receive Date: 20090820
  Receipt Date: 20090820
  Transmission Date: 20100115
  Serious: Yes (Hospitalization)
  Sender: FDA-Public Use
  Company Number: None

PATIENT
  Age: 83 Year
  Sex: Male
  Weight: 86.2 kg

DRUGS (2)
  1. METHOCARBAMOL [Suspect]
     Indication: MUSCLE RELAXANT THERAPY
     Dosage: 500MG QID PO
     Route: 048
     Dates: start: 20090709, end: 20090819
  2. TAMSULOSIN HCL [Suspect]
     Indication: BENIGN PROSTATIC HYPERPLASIA
     Dosage: 0.4MG EVERYDAY PO
     Route: 048
     Dates: start: 20090806, end: 20090819

REACTIONS (2)
  - ORTHOSTATIC HYPOTENSION [None]
  - SYNCOPE [None]
